FAERS Safety Report 19722258 (Version 1)
Quarter: 2021Q3

REPORT INFORMATION
  Report Type: Spontaneous
  Country: RU (occurrence: RU)
  Receive Date: 20210819
  Receipt Date: 20210819
  Transmission Date: 20211014
  Serious: Yes (Other)
  Sender: FDA-Public Use
  Company Number: RU-BAYER-2021-192558

PATIENT
  Sex: Female

DRUGS (7)
  1. ENOXAPARIN SODIUM. [Concomitant]
     Active Substance: ENOXAPARIN SODIUM
     Dosage: 0.4 ML, QD
     Route: 058
     Dates: start: 2019
  2. PROGESTERONE. [Concomitant]
     Active Substance: PROGESTERONE
     Dosage: 2.5 %
     Route: 030
     Dates: start: 2019, end: 2019
  3. VITAMIN D [VITAMIN D NOS] [Concomitant]
     Active Substance: VITAMIN D NOS
     Dosage: 2000 IU
     Dates: start: 2019
  4. ESTRADIOL HEMIHYDRATE (PATCH) [Suspect]
     Active Substance: ESTRADIOL HEMIHYDRATE
     Indication: IN VITRO FERTILISATION
     Dosage: UNK
     Route: 062
     Dates: start: 2018, end: 2018
  5. PROGESTERONE. [Concomitant]
     Active Substance: PROGESTERONE
     Dosage: 200 MG, TID
     Route: 067
     Dates: start: 2019, end: 2019
  6. ESTRADIOL HEMIHYDRATE (PATCH) [Suspect]
     Active Substance: ESTRADIOL HEMIHYDRATE
     Indication: IN VITRO FERTILISATION
     Dosage: UNK
     Route: 062
     Dates: start: 2019, end: 2019
  7. ESTRADIOL VALERATE. [Suspect]
     Active Substance: ESTRADIOL VALERATE
     Indication: IN VITRO FERTILISATION
     Dosage: 2 MG, QD
     Route: 048
     Dates: start: 2018, end: 2018

REACTIONS (8)
  - Premature delivery [None]
  - Off label use [None]
  - Subchorionic haematoma [None]
  - Cervix dystocia [None]
  - Off label use of device [None]
  - Maternal exposure during pregnancy [None]
  - Haemorrhage in pregnancy [None]
  - Device use issue [None]

NARRATIVE: CASE EVENT DATE: 2018
